FAERS Safety Report 9168883 (Version 2)
Quarter: 2013Q2

REPORT INFORMATION
  Report Type: Spontaneous
  Country: FR (occurrence: FR)
  Receive Date: 20130318
  Receipt Date: 20130402
  Transmission Date: 20140414
  Serious: Yes (Disabling)
  Sender: FDA-Public Use
  Company Number: FR-PFIZER INC-2013086077

PATIENT
  Age: 48 Year
  Sex: Female
  Weight: 54 kg

DRUGS (3)
  1. LYRICA [Suspect]
     Indication: OCCIPITAL NEURALGIA
     Dosage: UNK
     Route: 048
     Dates: start: 2008, end: 201008
  2. LEVOTHYROX [Concomitant]
     Indication: THYROID DISORDER
     Dosage: 112.5 UG, 1X/DAY
     Route: 048
     Dates: start: 2004
  3. AVLOCARDYL [Concomitant]
     Indication: THYROID DISORDER
     Dosage: UNK
     Route: 048
     Dates: start: 2004

REACTIONS (1)
  - Tendon rupture [Recovered/Resolved]
